FAERS Safety Report 21521804 (Version 2)
Quarter: 2023Q2

REPORT INFORMATION
  Report Type: Spontaneous
  Country: US (occurrence: US)
  Receive Date: 20221028
  Receipt Date: 20230513
  Transmission Date: 20230722
  Serious: Yes (Hospitalization, Other)
  Sender: FDA-Public Use
  Company Number: US-AUROBINDO-AUR-APL-2022-045384

PATIENT
  Age: 4 Month
  Sex: Male
  Weight: 6 kg

DRUGS (8)
  1. VECURONIUM BROMIDE [Suspect]
     Active Substance: VECURONIUM BROMIDE
     Indication: Product used for unknown indication
     Dosage: UNK, 1 MCG/KG/MIN (0.06 MG/KG/HR)
     Route: 065
  2. VECURONIUM BROMIDE [Suspect]
     Active Substance: VECURONIUM BROMIDE
     Dosage: UNK, TITRATED UP TO 5 MCG/KG/MIN (0.3 MG/KG/HR)
     Route: 065
  3. EPINEPHRINE [Suspect]
     Active Substance: EPINEPHRINE
     Indication: Product used for unknown indication
     Dosage: 0.01 MILLIGRAM/KILOGRAM
     Route: 065
  4. EPINEPHRINE [Suspect]
     Active Substance: EPINEPHRINE
     Dosage: 0.01 MILLIGRAM/KILOGRAM
     Route: 065
  5. EPINEPHRINE [Suspect]
     Active Substance: EPINEPHRINE
     Dosage: 0.01 MILLIGRAM/KILOGRAM
     Route: 065
  6. FENTANYL [Suspect]
     Active Substance: FENTANYL
     Indication: Analgesic therapy
     Dosage: UNK
     Route: 065
  7. FENTANYL [Suspect]
     Active Substance: FENTANYL
     Indication: Sedation
     Dosage: UNK, TITRATED UP TO 2 MCG/KG/HR
     Route: 065
  8. HYDROCORTISONE [Suspect]
     Active Substance: HYDROCORTISONE
     Indication: Product used for unknown indication
     Dosage: STRESS DOSE STEROIDS
     Route: 065

REACTIONS (1)
  - Neuromuscular block prolonged [Recovered/Resolved]
